FAERS Safety Report 5230025-8 (Version None)
Quarter: 2007Q1

REPORT INFORMATION
  Report Type: 
  Country: None (occurrence: None)
  Receive Date: 20070206
  Receipt Date: 20060925
  Transmission Date: 20070707
  Serious: No
  Sender: FDA-Public Use
  Company Number: PAR-5147

PATIENT
  Age: 84 Year
  Sex: Female
  Weight: 62.3 kg

DRUGS (4)
  1. PAROXETINE HYDROCHLORIDE [Suspect]
     Dosage: 30MG PER DAY
     Route: 048
     Dates: start: 20060825, end: 20060827
  2. LIPITOR [Concomitant]
     Route: 048
  3. EVISTA [Concomitant]
     Route: 048
  4. PROTONIX [Concomitant]
     Route: 048

REACTIONS (2)
  - PHARMACEUTICAL PRODUCT COMPLAINT [None]
  - RASH [None]
